FAERS Safety Report 4959026-1 (Version None)
Quarter: 2006Q1

REPORT INFORMATION
  Report Type: 
  Country: None (occurrence: None)
  Receive Date: 20060331
  Receipt Date: 20051202
  Transmission Date: 20060701
  Serious: Yes (Hospitalization, Other)
  Sender: FDA-Public Use
  Company Number: GBWYE255821DEC05

PATIENT
  Sex: Male
  Weight: 70 kg

DRUGS (7)
  1. ENBREL [Suspect]
     Indication: DRUG USE FOR UNKNOWN INDICATION
     Route: 058
     Dates: start: 20041005
  2. TINZAPARIN SODIUM [Concomitant]
     Dosage: 16625 UNITS, FREQUENCY UNKNOWN
     Route: 058
     Dates: start: 20040916
  3. AUGMENTIN '125' [Concomitant]
     Indication: CELLULITIS
     Route: 048
  4. FLUCLOXACILLIN [Concomitant]
     Indication: CELLULITIS
     Route: 048
     Dates: start: 20040916, end: 20040919
  5. FUROSEMIDE [Concomitant]
     Route: 048
  6. BENDROFLUMETHIAZIDE [Concomitant]
     Route: 048
  7. CYCLOSPORINE [Concomitant]
     Route: 065

REACTIONS (2)
  - PUSTULAR PSORIASIS [None]
  - URINARY TRACT INFECTION [None]
